FAERS Safety Report 14031835 (Version 2)
Quarter: 2017Q4

REPORT INFORMATION
  Report Type: Spontaneous
  Country: US (occurrence: US)
  Receive Date: 20171002
  Receipt Date: 20171005
  Transmission Date: 20180321
  Serious: Yes (Hospitalization, Other)
  Sender: FDA-Public Use
  Company Number: US-AMGEN-USASP2017147166

PATIENT
  Age: 46 Year
  Sex: Female

DRUGS (9)
  1. BEVACIZUMAB. [Suspect]
     Active Substance: BEVACIZUMAB
     Dosage: 1535 MG, UNK
     Route: 042
     Dates: start: 20111118
  2. CYCLOPHOSPHAMIDE. [Suspect]
     Active Substance: CYCLOPHOSPHAMIDE
     Indication: CHRONIC LYMPHOCYTIC LEUKAEMIA
     Dosage: 600 MG/M2, Q3WK
     Route: 042
     Dates: start: 20111114
  3. BEVACIZUMAB. [Suspect]
     Active Substance: BEVACIZUMAB
     Indication: CHRONIC LYMPHOCYTIC LEUKAEMIA
     Dosage: 15 MG/M2, UNK (X6)
     Route: 042
     Dates: start: 20111114
  4. RITUXIMAB. [Suspect]
     Active Substance: RITUXIMAB
     Dosage: 944 MG, UNK
     Route: 042
     Dates: start: 20111118
  5. PENTOSTATIN. [Suspect]
     Active Substance: PENTOSTATIN
     Indication: CHRONIC LYMPHOCYTIC LEUKAEMIA
     Dosage: 2 MG/M2, UNK (X6)
     Route: 042
     Dates: start: 20111114
  6. PENTOSTATIN. [Suspect]
     Active Substance: PENTOSTATIN
     Dosage: 4.5 MG, UNK
     Route: 042
     Dates: start: 20111118
  7. CYCLOPHOSPHAMIDE. [Suspect]
     Active Substance: CYCLOPHOSPHAMIDE
     Dosage: 1350 MG, UNK
     Route: 042
     Dates: start: 20111118
  8. PEGFILGRASTIM [Suspect]
     Active Substance: PEGFILGRASTIM
     Indication: CHRONIC LYMPHOCYTIC LEUKAEMIA
     Dosage: 6 MG, Q3WK
     Route: 058
     Dates: start: 20111114
  9. RITUXIMAB. [Suspect]
     Active Substance: RITUXIMAB
     Indication: CHRONIC LYMPHOCYTIC LEUKAEMIA
     Dosage: 375 MG/M2, UNK (X6)
     Route: 042
     Dates: start: 20111114

REACTIONS (2)
  - Bladder pain [Recovering/Resolving]
  - Aortic aneurysm [Not Recovered/Not Resolved]

NARRATIVE: CASE EVENT DATE: 20111212
